FAERS Safety Report 24671849 (Version 1)
Quarter: 2024Q4

REPORT INFORMATION
  Report Type: Spontaneous
  Country: GB (occurrence: GB)
  Receive Date: 20241127
  Receipt Date: 20241127
  Transmission Date: 20250114
  Serious: Yes (Disabling, Other)
  Sender: B BRAUN
  Company Number: GB-B.Braun Medical Inc.-2166101

PATIENT
  Age: 47 Year
  Sex: Female
  Weight: 61 kg

DRUGS (3)
  1. METRONIDAZOLE [Suspect]
     Active Substance: METRONIDAZOLE
     Indication: Adverse drug reaction
  2. NYSTATIN [Suspect]
     Active Substance: NYSTATIN
  3. CODEINE [Concomitant]
     Active Substance: CODEINE

REACTIONS (7)
  - Insomnia [Unknown]
  - Abnormal loss of weight [Unknown]
  - Palpitations [Unknown]
  - Abdominal pain upper [Unknown]
  - Decreased appetite [Unknown]
  - Anxiety [Unknown]
  - Nervous system disorder [Unknown]
